FAERS Safety Report 21089254 (Version 1)
Quarter: 2022Q3

REPORT INFORMATION
  Report Type: Spontaneous
  Country: US (occurrence: US)
  Receive Date: 20220715
  Receipt Date: 20220715
  Transmission Date: 20221026
  Serious: Yes (Other)
  Sender: FDA-Public Use
  Company Number: US-PFIZER INC-202200956316

PATIENT
  Age: 64 Year
  Sex: Female

DRUGS (1)
  1. PAXLOVID [Suspect]
     Active Substance: NIRMATRELVIR\RITONAVIR
     Indication: COVID-19 treatment
     Dosage: UNK

REACTIONS (8)
  - Hepatitis [Unknown]
  - Dysgeusia [Unknown]
  - Chromaturia [Unknown]
  - Abdominal pain [Unknown]
  - Asthenia [Unknown]
  - Pyrexia [Unknown]
  - Disturbance in attention [Unknown]
  - Fatigue [Unknown]
